FAERS Safety Report 8872012 (Version 1)
Quarter: 2012Q4

REPORT INFORMATION
  Report Type: 
  Country: US (occurrence: US)
  Receive Date: 20121029
  Receipt Date: 20121029
  Transmission Date: 20130627
  Serious: Yes (Hospitalization)
  Sender: FDA-Public Use
  Company Number: US-SHIRE-ALL1-2012-05074

PATIENT
  Sex: Female
  Weight: 90.7 kg

DRUGS (4)
  1. VYVANSE [Suspect]
     Indication: ATTENTION DEFICIT/HYPERACTIVITY DISORDER
     Dosage: 40 mg, 1x/day:qd
     Route: 048
     Dates: start: 2012
  2. NOVOLOG [Suspect]
     Indication: DIABETES MELLITUS
     Dosage: UNK, Unknown
     Route: 058
  3. NOVOLOG [Suspect]
     Dosage: UNK (sliding scale), Unknown
     Route: 058
  4. SYNTHROID [Concomitant]
     Indication: THYROID DISORDER
     Dosage: 100 ?g, 1x/day:qd
     Route: 048

REACTIONS (2)
  - Appendicitis [Recovered/Resolved]
  - Blood glucose decreased [Not Recovered/Not Resolved]
